FAERS Safety Report 7316882-X (Version None)
Quarter: 2011Q1

REPORT INFORMATION
  Report Type: 
  Country: None (occurrence: None)
  Receive Date: 20110226
  Receipt Date: 20110131
  Transmission Date: 20110831
  Serious: No
  Sender: FDA-Public Use
  Company Number: US-B.I. PHARMACEUTICALS,INC./RIDGEFIELD-2011-BP-03182BP

PATIENT
  Sex: Male

DRUGS (2)
  1. FLOVENT HFA [Concomitant]
  2. COMBIVENT [Suspect]
     Dosage: 4 PUF
     Route: 055

REACTIONS (1)
  - DRUG INEFFECTIVE [None]
